FAERS Safety Report 24721817 (Version 1)
Quarter: 2024Q4

REPORT INFORMATION
  Report Type: Spontaneous
  Country: US (occurrence: US)
  Receive Date: 20241211
  Receipt Date: 20241211
  Transmission Date: 20250115
  Serious: Yes (Hospitalization, Other)
  Sender: AMGEN
  Company Number: US-AMGEN-USASP2024239543

PATIENT

DRUGS (4)
  1. CARFILZOMIB [Suspect]
     Active Substance: CARFILZOMIB
     Indication: Plasma cell myeloma
     Dosage: 20 MILLIGRAM/SQ. METER (CFZ DOSE WAS 20M G/M2 DAYS 1,2 AND RANGED FROM 27-45M G/M2 IN SUBSEQUENT TRE
     Route: 065
  2. DEXAMETHASONE [Suspect]
     Active Substance: DEXAMETHASONE
     Indication: Plasma cell myeloma
     Dosage: UNK (AT 20-40MG WEEKLY IN 77% PTS.)
     Route: 065
  3. CYCLOPHOSPHAMIDE [Suspect]
     Active Substance: CYCLOPHOSPHAMIDE
     Indication: Plasma cell myeloma
     Dosage: UNK (CYCLOPHOSPHAMIDE IN 10 PATIENTS)
     Route: 065
  4. THALIDOMIDE [Suspect]
     Active Substance: THALIDOMIDE
     Indication: Plasma cell myeloma
     Dosage: UNK
     Route: 065

REACTIONS (12)
  - N-terminal prohormone brain natriuretic peptide increased [Unknown]
  - Myocardial infarction [Unknown]
  - Embolism venous [Unknown]
  - Pulmonary embolism [Unknown]
  - Pneumonia [Unknown]
  - Hip fracture [Unknown]
  - Sepsis [Unknown]
  - Systolic dysfunction [Unknown]
  - Ejection fraction decreased [Unknown]
  - Blood creatinine increased [Unknown]
  - Troponin increased [Unknown]
  - Left ventricular end-diastolic pressure increased [Unknown]
